FAERS Safety Report 12260092 (Version 1)
Quarter: 2016Q2

REPORT INFORMATION
  Report Type: Spontaneous
  Country: US (occurrence: US)
  Receive Date: 20160412
  Receipt Date: 20160412
  Transmission Date: 20160815
  Serious: No
  Sender: FDA-Public Use
  Company Number: US-SA-2015SA149221

PATIENT
  Age: 8 Year
  Sex: Female

DRUGS (1)
  1. ALLEGRA [Suspect]
     Active Substance: FEXOFENADINE HYDROCHLORIDE
     Indication: HYPERSENSITIVITY
     Dosage: START FROM: THIS MORNING
     Route: 048

REACTIONS (3)
  - Pallor [Unknown]
  - Abdominal pain [Unknown]
  - Diarrhoea [Unknown]
